FAERS Safety Report 4808589-5 (Version None)
Quarter: 2005Q4

REPORT INFORMATION
  Report Type: 
  Country: None (occurrence: None)
  Receive Date: 20051025
  Receipt Date: 20051013
  Transmission Date: 20060501
  Serious: Yes (Life-Threatening, Hospitalization)
  Sender: FDA-Public Use
  Company Number: FR-GLAXOSMITHKLINE-B0397681A

PATIENT
  Age: 49 Year
  Sex: Female

DRUGS (5)
  1. KIVEXA [Suspect]
     Indication: HIV INFECTION
     Route: 048
     Dates: start: 20050908, end: 20050908
  2. KALETRA [Suspect]
     Indication: HIV INFECTION
     Route: 048
     Dates: start: 20050908, end: 20050908
  3. FUZEON [Suspect]
     Indication: HIV INFECTION
     Route: 058
     Dates: start: 20050908, end: 20050908
  4. FORTUM [Concomitant]
     Route: 065
     Dates: start: 20050907
  5. CIFLOX [Concomitant]
     Route: 065
     Dates: start: 20050907

REACTIONS (2)
  - LACTIC ACIDOSIS [None]
  - SHOCK [None]
